FAERS Safety Report 13124877 (Version 1)
Quarter: 2017Q1

REPORT INFORMATION
  Report Type: Not Available
  Country: CN (occurrence: CN)
  Receive Date: 20170118
  Receipt Date: 20170118
  Transmission Date: 20170428
  Serious: Yes (Other)
  Sender: FDA-Public Use
  Company Number: CN-PURDUE PHARMA-GBR-2017-0042830

PATIENT
  Age: 66 Year
  Sex: Female
  Weight: 58 kg

DRUGS (1)
  1. MS CONTIN [Suspect]
     Active Substance: MORPHINE SULFATE
     Indication: BONE CANCER
     Dosage: 60 MG, Q12H
     Route: 048
     Dates: start: 20160503, end: 20161110

REACTIONS (3)
  - Delirium [Unknown]
  - Agitation [Unknown]
  - Dry mouth [Unknown]

NARRATIVE: CASE EVENT DATE: 20161108
